FAERS Safety Report 23262102 (Version 1)
Quarter: 2023Q4

REPORT INFORMATION
  Report Type: Spontaneous
  Country: US (occurrence: None)
  Receive Date: 20231204
  Receipt Date: 20231204
  Transmission Date: 20240109
  Serious: Yes (Other)
  Sender: FDA-Public Use
  Company Number: None

PATIENT
  Age: 59 Year
  Sex: Female

DRUGS (1)
  1. ADBRY [Suspect]
     Active Substance: TRALOKINUMAB-LDRM
     Indication: Psoriasis
     Route: 058

REACTIONS (5)
  - Ocular hyperaemia [None]
  - Eye pruritus [None]
  - Eye irritation [None]
  - Vision blurred [None]
  - Keratitis [None]

NARRATIVE: CASE EVENT DATE: 20231108
